FAERS Safety Report 6888491-8 (Version None)
Quarter: 2010Q3

REPORT INFORMATION
  Report Type: 
  Country: None (occurrence: None)
  Receive Date: 20100730
  Receipt Date: 20100719
  Transmission Date: 20110219
  Serious: Yes (Hospitalization)
  Sender: FDA-Public Use
  Company Number: PHHY2010FR47758

PATIENT
  Age: 68 Year
  Sex: Male

DRUGS (12)
  1. VOLTAREN [Suspect]
     Indication: MUSCULOSKELETAL PAIN
     Dosage: UNK
     Dates: start: 20100512
  2. VOLTAREN [Interacting]
     Dosage: UNK
     Route: 030
     Dates: start: 20100530, end: 20100530
  3. ARCOXIA [Interacting]
     Indication: OSTEOARTHRITIS
     Dosage: UNK
     Dates: start: 20100510, end: 20100530
  4. PLAVIX [Interacting]
     Indication: CORONARY ARTERY DISEASE
     Dosage: UNK
     Dates: start: 20050101
  5. KARDEGIC [Interacting]
     Indication: CORONARY ARTERY DISEASE
     Dosage: UNK
     Dates: start: 20050101, end: 20100603
  6. ALTIM [Concomitant]
     Dosage: UNK
  7. CRESTOR [Concomitant]
     Dosage: UNK
  8. COAPROVEL [Concomitant]
     Dosage: UNK
  9. DIAMICRON [Concomitant]
     Dosage: UNK
  10. DILTIAZEM [Concomitant]
     Dosage: UNK
  11. OMEPRAZOLE [Concomitant]
     Dosage: UNK
  12. STAGID [Concomitant]
     Dosage: UNK

REACTIONS (10)
  - BACK PAIN [None]
  - HAEMATOMA [None]
  - INTERVERTEBRAL DISC COMPRESSION [None]
  - INTERVERTEBRAL DISC DEGENERATION [None]
  - LUMBAR SPINAL STENOSIS [None]
  - MOTOR DYSFUNCTION [None]
  - NEUROLOGICAL SYMPTOM [None]
  - PARAESTHESIA [None]
  - PARAPLEGIA [None]
  - TOXIC EPIDERMAL NECROLYSIS [None]
